FAERS Safety Report 26172861 (Version 1)
Quarter: 2025Q4

REPORT INFORMATION
  Report Type: Spontaneous
  Country: JP (occurrence: JP)
  Receive Date: 20251218
  Receipt Date: 20251218
  Transmission Date: 20260117
  Serious: Yes (Other)
  Sender: BEIGENE
  Company Number: JP-BEONEMEDICINES-BGN-2025-021871

PATIENT
  Age: 74 Year
  Sex: Female

DRUGS (10)
  1. TEVIMBRA [Suspect]
     Active Substance: TISLELIZUMAB-JSGR
     Indication: Oesophageal carcinoma
     Dosage: 200 MILLIGRAM
  2. TEVIMBRA [Suspect]
     Active Substance: TISLELIZUMAB-JSGR
     Dosage: 200 MILLIGRAM
  3. TEVIMBRA [Suspect]
     Active Substance: TISLELIZUMAB-JSGR
     Dosage: 200 MILLIGRAM
  4. TEVIMBRA [Suspect]
     Active Substance: TISLELIZUMAB-JSGR
     Dosage: 200 MILLIGRAM
  5. TEVIMBRA [Suspect]
     Active Substance: TISLELIZUMAB-JSGR
     Dosage: 200 MILLIGRAM
  6. TEVIMBRA [Suspect]
     Active Substance: TISLELIZUMAB-JSGR
     Dosage: 200 MILLIGRAM
  7. TEVIMBRA [Suspect]
     Active Substance: TISLELIZUMAB-JSGR
     Dosage: 200 MILLIGRAM
  8. TEVIMBRA [Suspect]
     Active Substance: TISLELIZUMAB-JSGR
     Dosage: 200 MILLIGRAM
  9. CISPLATIN [Suspect]
     Active Substance: CISPLATIN
     Indication: Product used for unknown indication
     Dosage: UNK
  10. CISPLATIN [Suspect]
     Active Substance: CISPLATIN
     Dosage: AT A 50% REDUCED DOSE

REACTIONS (5)
  - Hypokalaemia [Recovering/Resolving]
  - Atrial fibrillation [Recovering/Resolving]
  - Hyponatraemia [Recovering/Resolving]
  - Stomatitis [Recovering/Resolving]
  - COVID-19 [Recovering/Resolving]
